FAERS Safety Report 8961049 (Version 1)
Quarter: 2012Q4

REPORT INFORMATION
  Report Type: 
  Country: US (occurrence: US)
  Receive Date: 20121212
  Receipt Date: 20121212
  Transmission Date: 20130627
  Serious: Yes (Hospitalization, Other)
  Sender: FDA-Public Use
  Company Number: US-PFIZER INC-2012312412

PATIENT
  Age: 48 Year
  Sex: Female
  Weight: 72.56 kg

DRUGS (5)
  1. LYRICA [Suspect]
     Indication: FIBROMYALGIA
     Dosage: 150 mg, 3x/day
  2. AMBIEN [Concomitant]
     Indication: SLEEP PROBLEM
     Dosage: 10 mg, 1x/day
  3. MELOXICAM [Concomitant]
     Indication: FIBROMYALGIA
     Dosage: 15 mg, 1x/day
  4. PERCOCET [Concomitant]
     Indication: PAIN
     Dosage: 5 mg, 4x/day
  5. ZANAFLEX [Concomitant]
     Indication: TREMOR
     Dosage: 4 mg, as needed

REACTIONS (5)
  - Kidney infection [Unknown]
  - Pancreatitis [Unknown]
  - Blood magnesium decreased [Unknown]
  - Blood potassium decreased [Unknown]
  - Cholecystitis infective [Unknown]
